FAERS Safety Report 4416448-5 (Version None)
Quarter: 2004Q3

REPORT INFORMATION
  Report Type: 
  Country: None (occurrence: None)
  Receive Date: 20040802
  Receipt Date: 20040719
  Transmission Date: 20050211
  Serious: Yes (Hospitalization)
  Sender: FDA-Public Use
  Company Number: FR-JNJFOC-20040705393

PATIENT
  Age: 87 Year
  Sex: Female

DRUGS (5)
  1. IXPRIM (TRAMADOL/APAP) TABLETS [Suspect]
     Dosage: 5 IN 1 DAY, ORAL
     Route: 048
     Dates: start: 20031219, end: 20031223
  2. ACETAMINOPHEN [Concomitant]
  3. OFLOXACINE (OFLOXACIN) [Concomitant]
  4. CEFTRIAXONE [Concomitant]
  5. MIACALCIN [Concomitant]

REACTIONS (6)
  - CONFUSIONAL STATE [None]
  - DELIRIUM [None]
  - FALL [None]
  - HALLUCINATION [None]
  - HALLUCINATION, VISUAL [None]
  - PANIC ATTACK [None]
